FAERS Safety Report 12608683 (Version 2)
Quarter: 2016Q3

REPORT INFORMATION
  Report Type: Report from Study
  Country: US (occurrence: US)
  Receive Date: 20160729
  Receipt Date: 20160811
  Transmission Date: 20161109
  Serious: Yes (Hospitalization)
  Sender: FDA-Public Use
  Company Number: US-ACTELION-A-US2016-136177

PATIENT
  Age: 77 Year
  Sex: Female

DRUGS (4)
  1. ADCIRCA [Concomitant]
     Active Substance: TADALAFIL
  2. OPSUMIT [Concomitant]
     Active Substance: MACITENTAN
     Indication: PULMONARY HYPERTENSION
     Route: 048
  3. VELETRI [Suspect]
     Active Substance: EPOPROSTENOL
     Indication: PULMONARY HYPERTENSION
     Dosage: 40.35 NG/KG, PER MIN
     Route: 042
     Dates: start: 20141205
  4. COUMADIN [Concomitant]
     Active Substance: WARFARIN SODIUM

REACTIONS (8)
  - Fatigue [Unknown]
  - Bronchitis [Unknown]
  - Malaise [Unknown]
  - Platelet count decreased [Unknown]
  - Fluid retention [Unknown]
  - Oedema peripheral [Unknown]
  - Pain in jaw [Unknown]
  - Mobility decreased [Unknown]

NARRATIVE: CASE EVENT DATE: 201606
